FAERS Safety Report 25401858 (Version 1)
Quarter: 2025Q2

REPORT INFORMATION
  Report Type: Spontaneous
  Country: CN (occurrence: CN)
  Receive Date: 20250605
  Receipt Date: 20250605
  Transmission Date: 20250716
  Serious: Yes (Other)
  Sender: MERCK SHARP & DOHME LLC
  Company Number: CN-009507513-2292128

PATIENT
  Age: 79 Year
  Sex: Female
  Weight: 55 kg

DRUGS (6)
  1. INVANZ [Suspect]
     Active Substance: ERTAPENEM SODIUM
     Indication: Sepsis
     Route: 041
     Dates: start: 20250429, end: 20250508
  2. MEROPENEM [Concomitant]
     Active Substance: MEROPENEM
     Route: 041
     Dates: start: 20250427, end: 20250429
  3. ASPIRIN [Concomitant]
     Active Substance: ASPIRIN
     Dates: start: 20250427
  4. PAPAVERINE [Concomitant]
     Active Substance: PAPAVERINE
     Dates: start: 20250427, end: 20250504
  5. ALPROSTADIL [Concomitant]
     Active Substance: ALPROSTADIL
     Dates: start: 20250427
  6. SODIUM CHLORIDE [Concomitant]
     Active Substance: SODIUM CHLORIDE
     Route: 041
     Dates: start: 20250429

REACTIONS (5)
  - Meningioma [Unknown]
  - Delirium [Recovering/Resolving]
  - Magnetic resonance imaging head abnormal [Unknown]
  - Cerebral atrophy [Unknown]
  - Drug ineffective [Unknown]

NARRATIVE: CASE EVENT DATE: 20250504
